FAERS Safety Report 20631493 (Version 1)
Quarter: 2022Q1

REPORT INFORMATION
  Report Type: Spontaneous
  Country: US (occurrence: US)
  Receive Date: 20220324
  Receipt Date: 20220324
  Transmission Date: 20220423
  Serious: Yes (Hospitalization)
  Sender: FDA-Public Use
  Company Number: US-009507513-2203USA006287

PATIENT
  Age: 66 Year
  Sex: Female
  Weight: 67.5 kg

DRUGS (6)
  1. KEYTRUDA [Suspect]
     Active Substance: PEMBROLIZUMAB
     Indication: Hepatocellular carcinoma
     Dosage: 200 MILLIGRAM, ONCE IN EVERY THREE WEEKS (Q3W)
     Route: 065
  2. KEYTRUDA [Suspect]
     Active Substance: PEMBROLIZUMAB
     Dosage: 200 MILLIGRAM, ONCE IN EVERY THREE WEEKS (Q3W); CYCLE 4 DAY 23
     Route: 065
     Dates: start: 20220323
  3. CEBPA-51 FREE ACID [Suspect]
     Active Substance: CEBPA-51 FREE ACID
     Indication: Hepatocellular carcinoma
     Dosage: 130 MILLIGRAM/SQ. METER, ONCE IN A WEEK (CONFLICTING INFORMATION ALSO REPORTED AS QOW); CYCLE 4 DAY
     Route: 042
     Dates: start: 20220215
  4. CEBPA-51 FREE ACID [Suspect]
     Active Substance: CEBPA-51 FREE ACID
     Dosage: 130 MILLIGRAM/SQ. METER, ONCE IN A WEEK (QOW)
     Route: 042
  5. MAXIPIME [Concomitant]
     Active Substance: CEFEPIME HYDROCHLORIDE
     Indication: Prophylaxis
     Dosage: 2000 DOSAGE FORM, Q12H
     Route: 042
     Dates: start: 20220228
  6. VANCOCIN [Concomitant]
     Active Substance: VANCOMYCIN HYDROCHLORIDE
     Indication: Prophylaxis
     Dosage: 1000 MILLIGRAM, Q24H
     Route: 042
     Dates: start: 20220228

REACTIONS (11)
  - Mental status changes [Recovering/Resolving]
  - Culture urine positive [Unknown]
  - Glycosuria [Not Recovered/Not Resolved]
  - Glomerular filtration rate increased [Recovered/Resolved]
  - Blood lactic acid abnormal [Unknown]
  - Lung opacity [Unknown]
  - Blood creatinine increased [Recovered/Resolved]
  - Dizziness [Unknown]
  - Anaemia [Not Recovered/Not Resolved]
  - Asthenia [Unknown]
  - Fatigue [Unknown]

NARRATIVE: CASE EVENT DATE: 20220225
